FAERS Safety Report 9997054 (Version 3)
Quarter: 2014Q2

REPORT INFORMATION
  Report Type: Report from Study
  Country: JP (occurrence: JP)
  Receive Date: 20140311
  Receipt Date: 20140519
  Transmission Date: 20141212
  Serious: Yes (Death)
  Sender: FDA-Public Use
  Company Number: JP-TAKEDA-2014TJP001715

PATIENT
  Age: 85 Year
  Sex: Male
  Weight: 57.9 kg

DRUGS (5)
  1. PIOGLITAZONE, GLIMEPIRIDE [Suspect]
     Indication: TYPE 2 DIABETES MELLITUS
     Dosage: 1 DF, QD
     Route: 048
     Dates: start: 20120507
  2. FAMOSTAGINE [Concomitant]
     Indication: GASTRITIS
     Dosage: 20 MG, UNK
     Route: 048
     Dates: start: 20090303
  3. ALSETIN [Concomitant]
     Indication: HYPERLIPIDAEMIA
     Dosage: 10 MG, UNK
     Route: 048
     Dates: start: 20090303
  4. KETAS [Concomitant]
     Indication: CEREBRAL INFARCTION
     Dosage: 10 MG, UNK
     Route: 048
     Dates: start: 20090303
  5. PLAVIX [Concomitant]
     Indication: CEREBRAL INFARCTION
     Dosage: 75 MG, UNK
     Route: 048
     Dates: start: 20120110

REACTIONS (1)
  - Drowning [Fatal]
